FAERS Safety Report 9670324 (Version 3)
Quarter: 2013Q4

REPORT INFORMATION
  Report Type: Spontaneous
  Country: DE (occurrence: None)
  Receive Date: 20131024
  Receipt Date: 20131112
  Transmission Date: 20140711
  Serious: Yes (Hospitalization)
  Sender: FDA-Public Use
  Company Number: 2013038475

PATIENT
  Age: 85 Year
  Sex: Male

DRUGS (4)
  1. PRIVIGEN [Suspect]
     Indication: CHRONIC LYMPHOCYTIC LEUKAEMIA
     Dosage: INFUSIONS RATE: MIN 0.67 MAX 9.6 ML/MIN.
     Route: 042
     Dates: start: 20130108, end: 20130108
  2. PRIVIGEN [Suspect]
     Indication: SECONDARY IMMUNODEFICIENCY
     Dosage: INFUSIONS RATE: MIN 0.67 MAX 9.6 ML/MIN.
     Route: 042
     Dates: start: 20130108, end: 20130108
  3. ATACAND /01349502/ (CANDESARTAN CILEXETIL) [Concomitant]
  4. PIRACETAM (PIRACETAM) [Concomitant]

REACTIONS (5)
  - Pulmonary embolism [None]
  - General physical health deterioration [None]
  - Pneumonia [None]
  - Cor pulmonale [None]
  - Pulmonary hypertension [None]
